FAERS Safety Report 13160947 (Version 5)
Quarter: 2017Q2

REPORT INFORMATION
  Report Type: Spontaneous
  Country: US (occurrence: US)
  Receive Date: 20170130
  Receipt Date: 20170608
  Transmission Date: 20170830
  Serious: No
  Sender: FDA-Public Use
  Company Number: US-ALEXION PHARMACEUTICALS INC.-A201700655

PATIENT
  Sex: Female

DRUGS (1)
  1. SOLIRIS [Suspect]
     Active Substance: ECULIZUMAB
     Indication: PAROXYSMAL NOCTURNAL HAEMOGLOBINURIA
     Dosage: 600 MG, Q2W
     Route: 042

REACTIONS (8)
  - Fatigue [Unknown]
  - Nausea [Unknown]
  - Gastrointestinal pain [Unknown]
  - Inappropriate schedule of drug administration [Not Recovered/Not Resolved]
  - Laryngospasm [Unknown]
  - Painful respiration [Unknown]
  - Drug ineffective [Unknown]
  - Abdominal pain [Unknown]
